FAERS Safety Report 24720187 (Version 1)
Quarter: 2024Q4

REPORT INFORMATION
  Report Type: Report from Study
  Country: SA (occurrence: SA)
  Receive Date: 20241211
  Receipt Date: 20241211
  Transmission Date: 20250114
  Serious: Yes (Other)
  Sender: EMD SERONO INC
  Company Number: SA-Merck Healthcare KGaA-2024064039

PATIENT
  Age: 44 Year
  Sex: Female

DRUGS (1)
  1. MAVENCLAD [Suspect]
     Active Substance: CLADRIBINE
     Indication: Multiple sclerosis

REACTIONS (1)
  - Rheumatoid arthritis [Unknown]

NARRATIVE: CASE EVENT DATE: 20241201
